FAERS Safety Report 9411796 (Version 1)
Quarter: 2013Q3

REPORT INFORMATION
  Report Type: Spontaneous
  Country: US (occurrence: US)
  Receive Date: 20130722
  Receipt Date: 20130722
  Transmission Date: 20140515
  Serious: No
  Sender: FDA-Public Use
  Company Number: US-PFIZER INC-2013213402

PATIENT
  Age: 36 Year
  Sex: Female
  Weight: 63.49 kg

DRUGS (3)
  1. CHANTIX [Suspect]
     Indication: SMOKING CESSATION THERAPY
     Dosage: UNK
     Dates: start: 20130710, end: 2013
  2. HUMALOG [Concomitant]
     Indication: DIABETES MELLITUS
     Dosage: UNK, AS NEEDED
  3. SUBOXONE [Concomitant]
     Dosage: UNK

REACTIONS (1)
  - Amnesia [Recovered/Resolved]
